FAERS Safety Report 11418838 (Version 1)
Quarter: 2015Q3

REPORT INFORMATION
  Report Type: Spontaneous
  Country: IT (occurrence: None)
  Receive Date: 20150824
  Receipt Date: 20150824
  Transmission Date: 20151125
  Serious: Yes (Life-Threatening, Hospitalization, Disabling)
  Sender: FDA-Public Use
  Company Number: 2015IT0188

PATIENT
  Age: 5 Year
  Sex: Male

DRUGS (1)
  1. ANAKINRA (ANAKINRA) [Suspect]
     Active Substance: ANAKINRA
     Indication: JUVENILE IDIOPATHIC ARTHRITIS

REACTIONS (1)
  - Histiocytosis haematophagic [None]
